FAERS Safety Report 17299115 (Version 1)
Quarter: 2020Q1

REPORT INFORMATION
  Report Type: Spontaneous
  Country: BR (occurrence: BR)
  Receive Date: 20200121
  Receipt Date: 20200121
  Transmission Date: 20200409
  Serious: Yes (Other)
  Sender: FDA-Public Use
  Company Number: BR-009507513-1912BRA010256

PATIENT
  Sex: Female

DRUGS (3)
  1. NUVARING [Suspect]
     Active Substance: ETHINYL ESTRADIOL\ETONOGESTREL
     Indication: CONTRACEPTION
     Dosage: 1 VAGINAL RING FOR 3 WEEKS WITH 7 DAYS OF PAUSE
     Route: 067
  2. NUVARING [Suspect]
     Active Substance: ETHINYL ESTRADIOL\ETONOGESTREL
     Dosage: 1 VAGINAL RING FOR 3 WEEKS WITH 7 DAYS OF PAUSE
     Route: 067
     Dates: start: 201910
  3. NUVARING [Suspect]
     Active Substance: ETHINYL ESTRADIOL\ETONOGESTREL
     Dosage: 1 VAGINAL RING FOR 3 WEEKS WITH 7 DAYS OF PAUSE
     Route: 067
     Dates: start: 20191127, end: 20191218

REACTIONS (14)
  - Emotional distress [Unknown]
  - Weight increased [Unknown]
  - Product label issue [Unknown]
  - Mental disorder [Unknown]
  - Insomnia [Unknown]
  - Abnormal withdrawal bleeding [Unknown]
  - Complication of device removal [Recovered/Resolved]
  - Haemorrhage [Unknown]
  - Hormone level abnormal [Unknown]
  - Acne [Unknown]
  - Device breakage [Unknown]
  - Coital bleeding [Unknown]
  - Anxiety [Unknown]
  - Vaginal haemorrhage [Unknown]

NARRATIVE: CASE EVENT DATE: 2019
